FAERS Safety Report 4766544-8 (Version None)
Quarter: 2005Q3

REPORT INFORMATION
  Report Type: 
  Country: None (occurrence: None)
  Receive Date: 20050909
  Receipt Date: 20050825
  Transmission Date: 20060218
  Serious: Yes (Hospitalization)
  Sender: FDA-Public Use
  Company Number: B0392764A

PATIENT

DRUGS (3)
  1. PAXIL [Suspect]
     Dosage: TRANSPLACENTARY
     Route: 064
  2. TRAZODONE (TRAZODONE) [Suspect]
     Dosage: TRANSPLACENTARY
     Route: 064
  3. DIPHENHYDRAMINE HCL [Suspect]
     Dosage: 25 MG/AT NIGHT/TRANSPLACENTARY
     Route: 064

REACTIONS (8)
  - AGITATION NEONATAL [None]
  - DEPRESSED LEVEL OF CONSCIOUSNESS [None]
  - DRUG EXPOSURE DURING PREGNANCY [None]
  - DRUG WITHDRAWAL SYNDROME NEONATAL [None]
  - HYPOGLYCAEMIA NEONATAL [None]
  - HYPOREFLEXIA [None]
  - HYPOTONIA NEONATAL [None]
  - LETHARGY [None]
